FAERS Safety Report 25141420 (Version 1)
Quarter: 2025Q2

REPORT INFORMATION
  Report Type: Spontaneous
  Country: US (occurrence: None)
  Receive Date: 20250329
  Receipt Date: 20250329
  Transmission Date: 20250716
  Serious: Yes (Death)
  Sender: FDA-CTU
  Company Number: None

PATIENT
  Age: 76 Year
  Sex: Male
  Weight: 65.5 kg

DRUGS (1)
  1. TALVEY [Suspect]
     Active Substance: TALQUETAMAB-TGVS
     Indication: Plasma cell myeloma
     Route: 058
     Dates: start: 20250316

REACTIONS (9)
  - Immune effector cell-associated neurotoxicity syndrome [None]
  - Hyperkalaemia [None]
  - Hypothermia [None]
  - Haemoglobin decreased [None]
  - Retroperitoneal haematoma [None]
  - Chest wall haematoma [None]
  - Disseminated intravascular coagulation [None]
  - Shock haemorrhagic [None]
  - Acidosis [None]

NARRATIVE: CASE EVENT DATE: 20250325
